FAERS Safety Report 9843546 (Version 1)
Quarter: 2013Q4

REPORT INFORMATION
  Report Type: Spontaneous
  Country: US (occurrence: None)
  Receive Date: 20131219
  Receipt Date: 20131219
  Transmission Date: 20140711
  Serious: Yes (Hospitalization)
  Sender: FDA-Public Use
  Company Number: 163-20785-13032731

PATIENT
  Age: 80 Year
  Sex: Male
  Weight: 109.77 kg

DRUGS (16)
  1. THALOMID (THALIDOMIDE) (50 MILLIGRAM, CAPSULES) [Suspect]
     Indication: PLASMA CELL MYELOMA
     Dosage: 100 MG, 2 IN 1 D, PO
     Route: 048
     Dates: start: 201209
  2. ALKERAN (MELPHALAN) [Concomitant]
  3. PREDNISONE (PREDNISONE) [Concomitant]
  4. BISOPROLOL HCTZ (BISELECT) [Concomitant]
  5. CRESTOR (ROSUVASTATIN) [Concomitant]
  6. LASIX (FUROSEMIDE) [Concomitant]
  7. METFORMIN HCL (METFORMIN HYDROCHLORIDE) [Concomitant]
  8. PRILOSEC OTC (OMEPRAZOLE) [Concomitant]
  9. RAMIPRIL (RAMIPRIL) [Concomitant]
  10. ZOMETA (ZOLEDRONIC ACID) [Concomitant]
  11. COUMADIN (WARFARIN SODIUM) [Concomitant]
  12. SPIRONOLACTONE (SPIRONOLACTONE) [Concomitant]
  13. GLIMEPIRIDE (GLIMEPIRIDE) [Concomitant]
  14. KEFLEX (CEFALEXIN MONOHYDRATE) [Concomitant]
  15. RAPAFLO (SILODOSIN) [Suspect]
  16. FUROSEMIDE (FUROSEMIDE) [Concomitant]

REACTIONS (5)
  - Constipation [None]
  - Urinary retention [None]
  - Anaemia [None]
  - Urinary tract infection [None]
  - Oedema peripheral [None]
